FAERS Safety Report 4280966-3 (Version None)
Quarter: 2004Q1

REPORT INFORMATION
  Report Type: 
  Country: None (occurrence: None)
  Receive Date: 20040127
  Receipt Date: 20040116
  Transmission Date: 20041129
  Serious: Yes (Hospitalization)
  Sender: FDA-Public Use
  Company Number: 2003-04117

PATIENT
  Age: 70 Year
  Sex: Female
  Weight: 53.1 kg

DRUGS (8)
  1. FERRLECIT [Suspect]
     Indication: IRON DEFICIENCY ANAEMIA
     Dosage: 150 MG/150 CC NS OVER 2 HRS; INTRAVENOUS (REGIMEN 2)
     Route: 042
     Dates: start: 20031117, end: 20031117
  2. FUROSEMIDE [Concomitant]
  3. AMIODARONE HCL [Concomitant]
  4. AVANDIA [Concomitant]
  5. LEXAPRO [Concomitant]
  6. LISINOPRIL [Concomitant]
  7. METOPROLOL [Concomitant]
  8. ASPIRIN [Concomitant]

REACTIONS (8)
  - FAECAL INCONTINENCE [None]
  - HYPERHIDROSIS [None]
  - HYPOTENSION [None]
  - INTENTIONAL MISUSE [None]
  - NAUSEA [None]
  - OVERDOSE [None]
  - URINARY INCONTINENCE [None]
  - VOMITING [None]
